FAERS Safety Report 17386414 (Version 1)
Quarter: 2020Q1

REPORT INFORMATION
  Report Type: Spontaneous
  Country: FR (occurrence: FR)
  Receive Date: 20200206
  Receipt Date: 20200206
  Transmission Date: 20200409
  Serious: Yes (Hospitalization, Other)
  Sender: FDA-Public Use
  Company Number: FR-009507513-2002FRA001227

PATIENT
  Sex: Male
  Weight: 68 kg

DRUGS (1)
  1. STROMECTOL [Suspect]
     Active Substance: IVERMECTIN
     Dosage: 3 MILLIGRAM, ONCE
     Route: 048

REACTIONS (2)
  - Parkinson^s disease [Unknown]
  - Hallucination [Unknown]
